FAERS Safety Report 16233515 (Version 3)
Quarter: 2019Q3

REPORT INFORMATION
  Report Type: Report from Study
  Country: US (occurrence: US)
  Receive Date: 20190424
  Receipt Date: 20190730
  Transmission Date: 20191004
  Serious: Yes (Other)
  Sender: FDA-Public Use
  Company Number: US-JNJFOC-20190313141

PATIENT
  Sex: Female

DRUGS (4)
  1. IMBRUVICA [Suspect]
     Active Substance: IBRUTINIB
     Indication: CHRONIC LYMPHOCYTIC LEUKAEMIA
     Route: 048
     Dates: start: 201901, end: 20190417
  2. IMBRUVICA [Suspect]
     Active Substance: IBRUTINIB
     Indication: LYMPHOCYTIC LEUKAEMIA
     Route: 048
     Dates: start: 20190126
  3. IMBRUVICA [Suspect]
     Active Substance: IBRUTINIB
     Route: 048
     Dates: start: 20190223
  4. IMBRUVICA [Suspect]
     Active Substance: IBRUTINIB
     Route: 048
     Dates: start: 20190325

REACTIONS (9)
  - Retinal haemorrhage [Unknown]
  - White blood cell count increased [Unknown]
  - Cough [Unknown]
  - Increased tendency to bruise [Unknown]
  - Eye contusion [Unknown]
  - Myalgia [Recovered/Resolved]
  - Drug ineffective [Unknown]
  - Asthenia [Unknown]
  - Atrial fibrillation [Unknown]
